FAERS Safety Report 5048492-1 (Version None)
Quarter: 2006Q3

REPORT INFORMATION
  Report Type: 
  Country: None (occurrence: None)
  Receive Date: 20060705
  Receipt Date: 20060626
  Transmission Date: 20061208
  Serious: Yes (Hospitalization)
  Sender: FDA-Public Use
  Company Number: 2006-06-0870

PATIENT
  Age: 49 Year
  Sex: Female

DRUGS (6)
  1. TEMODAL [Suspect]
     Indication: OLIGODENDROGLIOMA
     Dosage: 245 MG ORAL
     Route: 048
     Dates: start: 20060501, end: 20060521
  2. ACTONEL [Concomitant]
  3. CALCIUM/VITAMIN D [Concomitant]
  4. CLOBAZAM [Concomitant]
  5. VALPROIC ACID [Concomitant]
  6. HYDROXYZINE [Concomitant]

REACTIONS (9)
  - ALOPECIA [None]
  - CHILLS [None]
  - CONTUSION [None]
  - ECCHYMOSIS [None]
  - EPISTAXIS [None]
  - FEBRILE NEUTROPENIA [None]
  - PANCYTOPENIA [None]
  - PETECHIAE [None]
  - RASH [None]
